FAERS Safety Report 12911304 (Version 3)
Quarter: 2016Q4

REPORT INFORMATION
  Report Type: Spontaneous
  Country: FR (occurrence: FR)
  Receive Date: 20161104
  Receipt Date: 20161214
  Transmission Date: 20170207
  Serious: Yes (Death)
  Sender: FDA-Public Use
  Company Number: FR-PFIZER INC-2016504889

PATIENT
  Age: 3 Month
  Sex: Male
  Weight: 7 kg

DRUGS (10)
  1. PRODILANTIN [Suspect]
     Active Substance: FOSPHENYTOIN SODIUM
     Dosage: AT 35 MG PE/KG/EVERY 8 HOURS, 245 MG AT 08:30
     Route: 042
     Dates: start: 20161015, end: 20161015
  2. ACICLOVIR [Concomitant]
     Active Substance: ACYCLOVIR
     Dosage: UNK
     Dates: start: 201610
  3. PRODILANTIN [Suspect]
     Active Substance: FOSPHENYTOIN SODIUM
     Indication: STATUS EPILEPTICUS
     Dosage: LOADING DOSAGE 15 MG PHENYTOIN SODIUM EQUIVALENTS (PE)/KG
     Route: 042
     Dates: start: 20161013
  4. CLONAZEPAM. [Concomitant]
     Active Substance: CLONAZEPAM
     Dosage: 0.18 MG, UNK
     Dates: start: 201610
  5. PRODILANTIN [Suspect]
     Active Substance: FOSPHENYTOIN SODIUM
     Dosage: AT 35 MG PE/KG/EVERY 8 HOURS,  245 MG AT 03:00 A.M., 11:00 A.M., 06:30 P.M
     Route: 042
     Dates: start: 20161014
  6. CEFOTAXIME SODIUM [Concomitant]
     Active Substance: CEFOTAXIME SODIUM
     Dosage: 300 MG/KG, DAILY
     Dates: start: 201610
  7. PARACETAMOL [Concomitant]
     Active Substance: ACETAMINOPHEN
     Dosage: UNK
     Dates: start: 201610
  8. GENTAMICIN. [Concomitant]
     Active Substance: GENTAMICIN
     Dosage: UNK
     Dates: start: 201610
  9. DIAZEPAM. [Concomitant]
     Active Substance: DIAZEPAM
     Dosage: 3.5 MG, UNK
     Route: 037
     Dates: start: 201610
  10. NALBUPHINE [Concomitant]
     Active Substance: NALBUPHINE
     Dosage: UNK
     Dates: start: 201610

REACTIONS (4)
  - Accidental overdose [Fatal]
  - Product use issue [Fatal]
  - Bradycardia [Fatal]
  - Cardiac arrest [Fatal]

NARRATIVE: CASE EVENT DATE: 20161013
